FAERS Safety Report 17295307 (Version 3)
Quarter: 2020Q3

REPORT INFORMATION
  Report Type: Report from Study
  Country: US (occurrence: US)
  Receive Date: 20200121
  Receipt Date: 20200723
  Transmission Date: 20201102
  Serious: No
  Sender: FDA-Public Use
  Company Number: NVSC2020US009934

PATIENT
  Age: 72 Year
  Sex: Female

DRUGS (2)
  1. ENTRESTO [Suspect]
     Active Substance: SACUBITRIL\VALSARTAN
     Dosage: 24.26 MG, BID
     Route: 048
     Dates: start: 202001
  2. ENTRESTO [Suspect]
     Active Substance: SACUBITRIL\VALSARTAN
     Indication: CARDIAC FAILURE CHRONIC
     Dosage: UNK
     Route: 065
     Dates: start: 20200106

REACTIONS (11)
  - Musculoskeletal discomfort [Not Recovered/Not Resolved]
  - Weight decreased [Recovering/Resolving]
  - Sinusitis [Unknown]
  - Sneezing [Unknown]
  - Illness [Unknown]
  - Cough [Unknown]
  - Therapeutic response unexpected [Recovering/Resolving]
  - Pyrexia [Recovered/Resolved]
  - Product dose omission issue [Recovering/Resolving]
  - Rhinorrhoea [Unknown]
  - Fatigue [Recovering/Resolving]

NARRATIVE: CASE EVENT DATE: 20200109
